FAERS Safety Report 12773818 (Version 1)
Quarter: 2016Q3

REPORT INFORMATION
  Report Type: Spontaneous
  Country: US (occurrence: US)
  Receive Date: 20160923
  Receipt Date: 20160923
  Transmission Date: 20161109
  Serious: Yes (Other)
  Sender: FDA-Public Use
  Company Number: US-AMGEN-USASP2016128796

PATIENT
  Age: 85 Year
  Sex: Female

DRUGS (6)
  1. POMALYST [Concomitant]
     Active Substance: POMALIDOMIDE
     Dosage: UNK
  2. VELCADE [Concomitant]
     Active Substance: BORTEZOMIB
     Dosage: UNK
  3. REVLIMID [Concomitant]
     Active Substance: LENALIDOMIDE
     Dosage: UNK
  4. MELPHALAN [Concomitant]
     Active Substance: MELPHALAN
     Dosage: UNK
  5. KYPROLIS [Suspect]
     Active Substance: CARFILZOMIB
     Indication: PLASMA CELL MYELOMA
     Dosage: UNK
     Route: 065
  6. DARZALEX [Concomitant]
     Active Substance: DARATUMUMAB
     Dosage: UNK

REACTIONS (8)
  - Neuropathy peripheral [Unknown]
  - Drug effect decreased [Unknown]
  - Blood immunoglobulin G increased [Unknown]
  - Adverse drug reaction [Unknown]
  - Pain [Unknown]
  - Thrombosis [Unknown]
  - Pneumonia [Unknown]
  - Lung disorder [Unknown]
